FAERS Safety Report 7545760-6 (Version None)
Quarter: 2011Q2

REPORT INFORMATION
  Report Type: 
  Country: None (occurrence: None)
  Receive Date: 20110524
  Receipt Date: 20110308
  Transmission Date: 20111010
  Serious: No
  Sender: FDA-Public Use
  Company Number: 027162

PATIENT
  Sex: Female

DRUGS (1)
  1. CIMZIA [Suspect]
     Indication: CROHN'S DISEASE
     Dosage: (FORM: PFS SUBCUTANEOUS)
     Dates: start: 20100504

REACTIONS (5)
  - CROHN'S DISEASE [None]
  - STRESS [None]
  - FREQUENT BOWEL MOVEMENTS [None]
  - FLATULENCE [None]
  - FATIGUE [None]
